FAERS Safety Report 24315092 (Version 3)
Quarter: 2025Q3

REPORT INFORMATION
  Report Type: Report from Study
  Country: US (occurrence: US)
  Receive Date: 20240913
  Receipt Date: 20250816
  Transmission Date: 20251020
  Serious: Yes (Other)
  Sender: ALEXION PHARMACEUTICALS
  Company Number: US-AstraZeneca-CH-00702483A

PATIENT
  Age: 62 Year
  Sex: Female

DRUGS (1)
  1. ULTOMIRIS [Suspect]
     Active Substance: RAVULIZUMAB-CWVZ
     Indication: Atypical haemolytic uraemic syndrome
     Route: 065

REACTIONS (9)
  - Choking sensation [Unknown]
  - Fall [Recovering/Resolving]
  - Clavicle fracture [Recovering/Resolving]
  - Depression [Unknown]
  - Bone pain [Recovering/Resolving]
  - Amnesia [Unknown]
  - Brain fog [Unknown]
  - Frustration tolerance decreased [Unknown]
  - Dysphagia [Unknown]

NARRATIVE: CASE EVENT DATE: 20240901
